FAERS Safety Report 5788224-2 (Version None)
Quarter: 2008Q2

REPORT INFORMATION
  Report Type: 
  Country: None (occurrence: None)
  Receive Date: 20080625
  Receipt Date: 20080622
  Transmission Date: 20081010
  Serious: Yes (Other)
  Sender: FDA-Public Use
  Company Number: BR-BAYER-BR-2007-025016

PATIENT
  Age: 28 Year
  Sex: Female

DRUGS (1)
  1. YASMIN [Suspect]
     Indication: ORAL CONTRACEPTION
     Route: 048
     Dates: start: 20020101, end: 20070401

REACTIONS (6)
  - ABDOMINAL PAIN [None]
  - ANTEPARTUM HAEMORRHAGE [None]
  - NO ADVERSE EVENT [None]
  - POLYMENORRHOEA [None]
  - PREGNANCY ON ORAL CONTRACEPTIVE [None]
  - ROAD TRAFFIC ACCIDENT [None]
